FAERS Safety Report 5810870-8 (Version None)
Quarter: 2008Q3

REPORT INFORMATION
  Report Type: 
  Country: None (occurrence: None)
  Receive Date: 20080710
  Receipt Date: 20080701
  Transmission Date: 20090109
  Serious: Yes (Hospitalization, Other)
  Sender: FDA-Public Use
  Company Number: 2008SP013135

PATIENT
  Age: 57 Year
  Sex: Female

DRUGS (4)
  1. PEG-INTRON (PEGINTERFERON ALFA-2B) [Suspect]
     Indication: HEPATITIS C
     Dosage: SC
     Route: 058
     Dates: start: 20071126, end: 20080603
  2. PEG-INTRON (PEGINTERFERON ALFA-2B) [Suspect]
     Indication: HEPATITIS C
     Dosage: SC
     Route: 058
     Dates: start: 20080701
  3. RIBAVIRIN [Suspect]
     Indication: HEPATITIS C
     Dosage: PO
     Route: 048
     Dates: start: 20071126, end: 20080603
  4. RIBAVIRIN [Suspect]
     Indication: HEPATITIS C
     Dosage: PO
     Route: 048
     Dates: start: 20080701

REACTIONS (19)
  - ABNORMAL BEHAVIOUR [None]
  - ALOPECIA [None]
  - ANAEMIA [None]
  - COGNITIVE DISORDER [None]
  - ENCEPHALITIS VIRAL [None]
  - FAECES DISCOLOURED [None]
  - FALL [None]
  - GASTRITIS [None]
  - HALLUCINATION [None]
  - IMMUNE SYSTEM DISORDER [None]
  - MALAISE [None]
  - OESOPHAGITIS [None]
  - OROPHARYNGEAL CANDIDIASIS [None]
  - SINUSITIS [None]
  - SPUTUM CULTURE POSITIVE [None]
  - STAPHYLOCOCCAL INFECTION [None]
  - STREPTOCOCCAL INFECTION [None]
  - TINEA PEDIS [None]
  - WEIGHT DECREASED [None]
